FAERS Safety Report 4295177-5 (Version None)
Quarter: 2004Q1

REPORT INFORMATION
  Report Type: 
  Country: None (occurrence: None)
  Receive Date: 20040212
  Receipt Date: 20040127
  Transmission Date: 20041129
  Serious: Yes (Death)
  Sender: FDA-Public Use
  Company Number: 183933

PATIENT
  Age: 69 Year
  Sex: Female

DRUGS (12)
  1. AVONEX [Suspect]
     Indication: MULTIPLE SCLEROSIS
     Dosage: 30 MCG QW IM
     Route: 030
     Dates: start: 19991201, end: 20030101
  2. BACLOFEN [Concomitant]
  3. ZANAFLEX [Concomitant]
  4. MYSOLINE ^ICI^ [Concomitant]
  5. METOPROLOL [Concomitant]
  6. ACCUPRIL [Concomitant]
  7. CLONIDINE [Concomitant]
  8. LIPITOR [Concomitant]
  9. FUROSEMIDE [Concomitant]
  10. INSULIN [Concomitant]
  11. PERI-COLACE [Concomitant]
  12. ALPHAGAN [Concomitant]

REACTIONS (1)
  - MYOCARDIAL INFARCTION [None]
